FAERS Safety Report 20725228 (Version 3)
Quarter: 2022Q2

REPORT INFORMATION
  Report Type: Report from Study
  Country: CA (occurrence: CA)
  Receive Date: 20220419
  Receipt Date: 20220610
  Transmission Date: 20220720
  Serious: Yes (Hospitalization)
  Sender: FDA-Public Use
  Company Number: CA-JNJFOC-20220126506

PATIENT
  Age: 16 Year
  Sex: Female
  Weight: 65 kg

DRUGS (2)
  1. REMICADE [Suspect]
     Active Substance: INFLIXIMAB
     Indication: Crohn^s disease
     Dosage: EXPIRY DATE: 30-SEP-2024. ANOTHER THERAPY START DATE WAS REPORTED AS 11-JUN-2015.?EXPIRY DATE: 31-JU
     Route: 042
     Dates: start: 20120424
  2. REMICADE [Suspect]
     Active Substance: INFLIXIMAB
     Dosage: EXPIRY DATE: 30-SEP-2024. ANOTHER THERAPY START DATE WAS REPORTED AS 11-JUN-2015.?EXPIRY DATE: 31-JU
     Route: 042
     Dates: start: 20120424

REACTIONS (7)
  - Sepsis [Unknown]
  - Pneumonia [Unknown]
  - Exposure during pregnancy [Not Recovered/Not Resolved]
  - Abdominal pain lower [Unknown]
  - Nausea [Unknown]
  - Dyspepsia [Unknown]
  - Off label use [Unknown]

NARRATIVE: CASE EVENT DATE: 20120424
